FAERS Safety Report 23889545 (Version 1)
Quarter: 2024Q2

REPORT INFORMATION
  Report Type: Other
  Country: CN (occurrence: None)
  Receive Date: 20240523
  Receipt Date: 20240523
  Transmission Date: 20240716
  Serious: Yes (Death)
  Sender: FDA-Public Use
  Company Number: CN-ROCHE-3565713

PATIENT
  Age: 38 Year
  Sex: Male

DRUGS (3)
  1. BEVACIZUMAB [Suspect]
     Active Substance: BEVACIZUMAB
     Indication: Glioma
     Route: 042
  2. TEMOZOLOMIDE [Suspect]
     Active Substance: TEMOZOLOMIDE
     Indication: Glioma
     Dosage: 150-200MG/M2 WITH 5 DAYS ON AND 23 DAYS OFF
     Route: 048
  3. TEMOZOLOMIDE [Suspect]
     Active Substance: TEMOZOLOMIDE
     Dosage: ON A 28-DAY CYCLE FOR 7 DAYS ON WITH 7 DAYS OFF
     Route: 048

REACTIONS (1)
  - Neoplasm progression [Fatal]
